FAERS Safety Report 9519357 (Version 1)
Quarter: 2013Q1

REPORT INFORMATION
  Report Type: Spontaneous
  Country: US (occurrence: None)
  Receive Date: 20130305
  Receipt Date: 20130305
  Transmission Date: 20140127
  Serious: Yes (Other)
  Sender: FDA-Public Use
  Company Number: 163-21880-12010808

PATIENT
  Age: 55 Year
  Sex: Female
  Weight: 80 kg

DRUGS (2)
  1. REVLIMID (LENALIDOMIDE) (25 MILLIGRAM, CAPSULES) [Suspect]
     Indication: PLASMA CELL MYELOMA
     Dosage: 25 MG, 1 IN 1 D, PO
     Route: 048
     Dates: start: 200812, end: 200912
  2. MAOI (MONOAMINE OXIDASE INHIBITORS, NON-SELECTIVE) (UNKNOWN)? [Concomitant]

REACTIONS (3)
  - Neutropenia [None]
  - Plasma cell myeloma [None]
  - Drug ineffective [None]
